FAERS Safety Report 19078264 (Version 1)
Quarter: 2021Q1

REPORT INFORMATION
  Report Type: Spontaneous
  Country: US (occurrence: US)
  Receive Date: 20210330
  Receipt Date: 20210330
  Transmission Date: 20210420
  Serious: No
  Sender: FDA-Public Use
  Company Number: None

PATIENT

DRUGS (1)
  1. NUVOMED MULTI?PURPOSE ANTIBACTERIAL WET WIPES [Suspect]
     Active Substance: BENZALKONIUM CHLORIDE

REACTIONS (2)
  - Product advertising issue [None]
  - Product use complaint [None]
